FAERS Safety Report 4540826-7 (Version None)
Quarter: 2004Q4

REPORT INFORMATION
  Report Type: 
  Country: None (occurrence: None)
  Receive Date: 20041229
  Receipt Date: 20040603
  Transmission Date: 20050328
  Serious: Yes (Hospitalization)
  Sender: FDA-Public Use
  Company Number: GB-MERCK-0406GBR00028

PATIENT
  Age: 94 Year
  Sex: Female

DRUGS (11)
  1. VIOXX [Suspect]
     Indication: ARTHRALGIA
     Route: 048
     Dates: start: 20040506, end: 20040512
  2. VIOXX [Suspect]
     Indication: LOCALISED OSTEOARTHRITIS
     Route: 048
     Dates: start: 20040506, end: 20040512
  3. NITRAZEPAM [Concomitant]
     Indication: INSOMNIA
     Route: 048
  4. FUROSEMIDE [Concomitant]
     Indication: CARDIAC FAILURE CONGESTIVE
     Route: 048
  5. ASPIRIN [Concomitant]
     Indication: PROPHYLAXIS
     Route: 065
  6. ACETAMINOPHEN AND PROPOXYPHENE HYDROCHLORIDE [Concomitant]
     Indication: LOCALISED OSTEOARTHRITIS
     Route: 048
     Dates: end: 20040502
  7. ATORVASTATIN CALCIUM [Concomitant]
     Indication: PROPHYLAXIS
     Route: 048
  8. SENNA [Concomitant]
     Indication: CONSTIPATION
     Route: 048
     Dates: end: 20040428
  9. DIGOXIN [Concomitant]
     Indication: ATRIAL FIBRILLATION
     Route: 048
  10. LEVOTHYROXINE SODIUM [Concomitant]
     Indication: HYPOTHYROIDISM
     Route: 048
  11. ACETAMINOPHEN [Concomitant]
     Indication: LOCALISED OSTEOARTHRITIS
     Route: 048
     Dates: start: 20040502, end: 20040506

REACTIONS (2)
  - CARDIAC FAILURE CONGESTIVE [None]
  - RENAL FAILURE CHRONIC [None]
